FAERS Safety Report 24682441 (Version 1)
Quarter: 2024Q4

REPORT INFORMATION
  Report Type: Spontaneous
  Country: TH (occurrence: TH)
  Receive Date: 20241130
  Receipt Date: 20241130
  Transmission Date: 20250114
  Serious: Yes (Other)
  Sender: ROCHE
  Company Number: TH-ROCHE-10000141729

PATIENT
  Age: 64 Year
  Sex: Male

DRUGS (4)
  1. TECENTRIQ [Suspect]
     Active Substance: ATEZOLIZUMAB
     Indication: Non-small cell lung cancer
     Route: 065
  2. AVASTIN [Suspect]
     Active Substance: BEVACIZUMAB
     Indication: Non-small cell lung cancer
     Route: 065
  3. CARBOPLATIN [Suspect]
     Active Substance: CARBOPLATIN
     Indication: Non-small cell lung cancer
     Route: 065
  4. PACLITAXEL [Suspect]
     Active Substance: PACLITAXEL
     Indication: Non-small cell lung cancer
     Route: 065

REACTIONS (7)
  - Pulmonary haemorrhage [Unknown]
  - Vomiting [Unknown]
  - Pyrexia [Unknown]
  - Cerebrovascular accident [Recovered/Resolved]
  - Metastases to bone [Unknown]
  - Haematocrit decreased [Unknown]
  - Platelet count decreased [Unknown]
